FAERS Safety Report 15654047 (Version 1)
Quarter: 2018Q4

REPORT INFORMATION
  Report Type: Not Available
  Country: NL (occurrence: NL)
  Receive Date: 20181125
  Receipt Date: 20181125
  Transmission Date: 20190205
  Serious: Yes (Other)
  Sender: FDA-Public Use
  Company Number: NL-SYNTHON BV-NL01PV18_47656

PATIENT
  Age: 37 Year
  Sex: Female

DRUGS (4)
  1. LEVOCETIRIZINE DIHYDROCHLORIDE. [Suspect]
     Active Substance: LEVOCETIRIZINE DIHYDROCHLORIDE
     Indication: SEASONAL ALLERGY
     Dosage: 2 DF, WKLY
     Route: 065
  2. AZELASTINE. [Concomitant]
     Active Substance: AZELASTINE HYDROCHLORIDE
     Dosage: UNK
     Route: 065
     Dates: start: 20180606
  3. FLUTICASON [Concomitant]
     Active Substance: FLUTICASONE
     Dosage: UNK
     Route: 065
     Dates: start: 20180606
  4. LORATADINE. [Concomitant]
     Active Substance: LORATADINE
     Dosage: UNK
     Route: 065
     Dates: start: 20180606

REACTIONS (4)
  - Abortion spontaneous [Unknown]
  - Abdominal pain [Unknown]
  - Uterine haemorrhage [Unknown]
  - Exposure during pregnancy [Unknown]

NARRATIVE: CASE EVENT DATE: 20180613
